FAERS Safety Report 20972372 (Version 3)
Quarter: 2022Q4

REPORT INFORMATION
  Report Type: Spontaneous
  Country: JP (occurrence: JP)
  Receive Date: 20220617
  Receipt Date: 20221219
  Transmission Date: 20230112
  Serious: Yes (Hospitalization, Other)
  Sender: FDA-Public Use
  Company Number: JP-ONO-2022JP016253

PATIENT
  Age: 67 Year
  Sex: Female
  Weight: 41.6 kg

DRUGS (6)
  1. OPDIVO [Suspect]
     Active Substance: NIVOLUMAB
     Indication: Hodgkin^s disease
     Dosage: 240 MG, Q2W
     Route: 041
     Dates: start: 20211221, end: 20220411
  2. VONOPRAZAN FUMARATE [Concomitant]
     Active Substance: VONOPRAZAN FUMARATE
     Indication: Product used for unknown indication
     Dosage: UNK
     Route: 048
     Dates: start: 20210505
  3. ATOVAQUONE [Concomitant]
     Active Substance: ATOVAQUONE
     Indication: Prophylaxis
     Dosage: UNK
     Route: 048
     Dates: start: 20210427
  4. PREGABALIN [Concomitant]
     Active Substance: PREGABALIN
     Indication: Product used for unknown indication
     Dosage: UNK
     Route: 048
     Dates: start: 20210506
  5. ALLELOCK [Concomitant]
     Active Substance: OLOPATADINE HYDROCHLORIDE
     Indication: Product used for unknown indication
     Dosage: UNK
     Route: 048
     Dates: start: 20220314
  6. CODEINE PHOSPHATE [Concomitant]
     Active Substance: CODEINE PHOSPHATE
     Indication: Product used for unknown indication
     Dosage: UNK
     Route: 048
     Dates: start: 20220328

REACTIONS (5)
  - Ketoacidosis [Unknown]
  - Fulminant type 1 diabetes mellitus [Not Recovered/Not Resolved]
  - Hypothyroidism [Not Recovered/Not Resolved]
  - Subdural haematoma [Recovered/Resolved]
  - Rhinitis allergic [Not Recovered/Not Resolved]

NARRATIVE: CASE EVENT DATE: 20220124
